FAERS Safety Report 4611303-X (Version None)
Quarter: 2005Q2

REPORT INFORMATION
  Report Type: 
  Country: None (occurrence: None)
  Receive Date: 20050311
  Receipt Date: 20041129
  Transmission Date: 20051028
  Serious: No
  Sender: FDA-Public Use
  Company Number: 2004-BP-10863BP

PATIENT
  Age: 73 Year
  Sex: Male
  Weight: 79.4 kg

DRUGS (7)
  1. SPIRIVA [Suspect]
     Indication: CHRONIC OBSTRUCTIVE PULMONARY DISEASE
     Dosage: 18 MG (18 MG), IH
     Dates: start: 20041006
  2. SPIRIVA [Suspect]
  3. ADVAIR DISKUS 100/50 [Concomitant]
  4. ACCOLATE [Concomitant]
  5. DIGOXIN (DOGOXIN) [Concomitant]
  6. FOSAMAX [Concomitant]
  7. BEXTRA [Concomitant]

REACTIONS (3)
  - DYSPNOEA EXACERBATED [None]
  - PRODUCTIVE COUGH [None]
  - RHINORRHOEA [None]
